FAERS Safety Report 6265849-1 (Version None)
Quarter: 2009Q3

REPORT INFORMATION
  Report Type: 
  Country: None (occurrence: None)
  Receive Date: 20090713
  Receipt Date: 20090703
  Transmission Date: 20100115
  Serious: Yes (Other)
  Sender: FDA-Public Use
  Company Number: B0583121A

PATIENT
  Sex: Male
  Weight: 85 kg

DRUGS (6)
  1. SERETIDE [Suspect]
     Indication: ASTHMA
     Route: 055
     Dates: start: 20080315, end: 20081022
  2. PERINDOPRIL [Concomitant]
     Route: 065
  3. DIGOXIN [Concomitant]
     Route: 065
  4. TRIMETAZIDINE [Concomitant]
     Route: 065
  5. UNKNOWN [Concomitant]
     Route: 065
  6. TAURINE [Concomitant]
     Route: 065

REACTIONS (3)
  - ASTHMA [None]
  - RESPIRATORY TRACT CONGESTION [None]
  - VISUAL ACUITY REDUCED [None]
